FAERS Safety Report 5704669-0 (Version None)
Quarter: 2008Q2

REPORT INFORMATION
  Report Type: 
  Country: None (occurrence: None)
  Receive Date: 20080414
  Receipt Date: 20080407
  Transmission Date: 20081010
  Serious: Yes (Hospitalization)
  Sender: FDA-Public Use
  Company Number: FR-AVENTIS-200811259FR

PATIENT
  Age: 59 Year
  Sex: Male

DRUGS (5)
  1. VASTEN                             /00880402/ [Suspect]
     Route: 048
  2. LANTUS [Suspect]
     Indication: DIABETES MELLITUS
     Route: 058
     Dates: start: 20080208
  3. COMBIVIR [Suspect]
     Route: 048
     Dates: end: 20080211
  4. SUSTIVA [Suspect]
     Route: 048
     Dates: end: 20080211
  5. METFORMIN HCL [Suspect]
     Route: 048
     Dates: end: 20080208

REACTIONS (1)
  - ARTHRALGIA [None]
